FAERS Safety Report 9121054 (Version 2)
Quarter: 2013Q1

REPORT INFORMATION
  Report Type: Spontaneous
  Country: FR (occurrence: FR)
  Receive Date: 20130226
  Receipt Date: 20130311
  Transmission Date: 20140127
  Serious: Yes (Death)
  Sender: FDA-Public Use
  Company Number: FR-ROCHE-1194965

PATIENT
  Age: 67 Year
  Sex: Female

DRUGS (6)
  1. HERCEPTIN [Suspect]
     Indication: OSTEITIS DEFORMANS
     Route: 042
     Dates: end: 20120402
  2. KYTRIL [Concomitant]
     Route: 048
     Dates: start: 20120402, end: 20120402
  3. XANAX [Concomitant]
     Route: 048
  4. TENSTATEN [Concomitant]
     Route: 048
  5. SPASFON [Concomitant]
     Route: 048
     Dates: end: 20120402
  6. TAXOL [Concomitant]
     Indication: OSTEITIS DEFORMANS
     Route: 065
     Dates: start: 201103

REACTIONS (6)
  - Injection related reaction [Fatal]
  - Angioedema [Fatal]
  - Cyanosis [Fatal]
  - Dyspnoea [Fatal]
  - Hypertension [Fatal]
  - Deep vein thrombosis [Fatal]
